FAERS Safety Report 8393696 (Version 6)
Quarter: 2015Q2

REPORT INFORMATION
  Report Type: Report from Study
  Country: DE (occurrence: DE)
  Receive Date: 20120207
  Receipt Date: 20150518
  Transmission Date: 20150821
  Serious: Yes (Hospitalization)
  Sender: FDA-Public Use
  Company Number: DE-ROCHE-1033752

PATIENT
  Age: 41 Year
  Sex: Male
  Weight: 90.7 kg

DRUGS (15)
  1. MORPHINE [Suspect]
     Active Substance: MORPHINE
     Indication: PRODUCT USED FOR UNKNOWN INDICATION
     Route: 065
     Dates: start: 20111205
  2. PANTOZOL [Concomitant]
     Active Substance: PANTOPRAZOLE SODIUM
     Dosage: SINGLE DOSE
     Route: 065
     Dates: start: 20120126, end: 20120126
  3. PANTOZOL [Concomitant]
     Active Substance: PANTOPRAZOLE SODIUM
     Route: 042
     Dates: start: 20120123, end: 20120126
  4. HALOPERIDOL. [Concomitant]
     Active Substance: HALOPERIDOL
     Route: 065
     Dates: start: 20120116, end: 20120127
  5. CAPROS [Concomitant]
     Route: 065
     Dates: start: 20120213
  6. VEMURAFENIB [Suspect]
     Active Substance: VEMURAFENIB
     Indication: METASTATIC MALIGNANT MELANOMA
     Dosage: DATE OF LAST DOSE PRIOR TO EVENT ON 23/JAN/2012
     Route: 048
     Dates: start: 20111219, end: 20120123
  7. MORPHINE [Suspect]
     Active Substance: MORPHINE
     Route: 065
     Dates: start: 20120123, end: 20120123
  8. ALLOPURINOL. [Concomitant]
     Active Substance: ALLOPURINOL
     Route: 065
     Dates: start: 20111212
  9. CAPROS [Concomitant]
     Route: 065
     Dates: start: 20111212, end: 20120127
  10. PANTOZOL [Concomitant]
     Active Substance: PANTOPRAZOLE SODIUM
     Route: 065
     Dates: start: 20120123
  11. LYRICA [Concomitant]
     Active Substance: PREGABALIN
     Route: 065
     Dates: start: 20111212
  12. CAPROS [Concomitant]
     Route: 065
     Dates: start: 20111215, end: 20120212
  13. DICLOFENAC [Suspect]
     Active Substance: DICLOFENAC
     Indication: PRODUCT USED FOR UNKNOWN INDICATION
     Route: 065
     Dates: start: 20111212, end: 20120127
  14. NYSTADERM [Concomitant]
     Route: 065
     Dates: start: 20120123
  15. VEMURAFENIB [Suspect]
     Active Substance: VEMURAFENIB
     Dosage: DATE OF LAST DOSE PRIOR TO EVENT ON 23/JAN/2012
     Route: 048
     Dates: start: 20120124

REACTIONS (1)
  - Gastrooesophageal reflux disease [Recovered/Resolved]

NARRATIVE: CASE EVENT DATE: 20120123
